FAERS Safety Report 4395287-8 (Version None)
Quarter: 2004Q3

REPORT INFORMATION
  Report Type: 
  Country: None (occurrence: None)
  Receive Date: 20040707
  Receipt Date: 20040624
  Transmission Date: 20050211
  Serious: Yes (Other)
  Sender: FDA-Public Use
  Company Number: ZANA001320

PATIENT
  Age: 84 Year
  Sex: Female

DRUGS (1)
  1. TIZANIDINE HCL [Suspect]
     Indication: MUSCLE SPASTICITY
     Dosage: 4 MG BID ORAL
     Route: 048
     Dates: start: 20040501, end: 20040611

REACTIONS (4)
  - DISEASE PROGRESSION [None]
  - HYPERHIDROSIS [None]
  - PNEUMONIA [None]
  - VOMITING [None]
